FAERS Safety Report 15092793 (Version 1)
Quarter: 2018Q2

REPORT INFORMATION
  Report Type: Spontaneous
  Country: FR (occurrence: FR)
  Receive Date: 20180629
  Receipt Date: 20180629
  Transmission Date: 20180711
  Serious: Yes (Congenital Anomaly)
  Sender: FDA-Public Use
  Company Number: FR-JNJFOC-20180631455

PATIENT
  Sex: Female
  Weight: 3.15 kg

DRUGS (2)
  1. DEPAKINE [Suspect]
     Active Substance: VALPROATE SODIUM
     Indication: PRODUCT USED FOR UNKNOWN INDICATION
     Dosage: MOTHER DOSING
     Route: 064
     Dates: start: 2007, end: 20080201
  2. EPITOMAX [Suspect]
     Active Substance: TOPIRAMATE
     Indication: IDIOPATHIC GENERALISED EPILEPSY
     Dosage: MOTHER DOSING
     Route: 064
     Dates: start: 2007, end: 20080201

REACTIONS (7)
  - Clinodactyly [Not Recovered/Not Resolved]
  - Poor feeding infant [Unknown]
  - Foetal exposure during pregnancy [Recovered/Resolved]
  - Dysmorphism [Not Recovered/Not Resolved]
  - Arachnodactyly [Not Recovered/Not Resolved]
  - Ventricular septal defect [Recovered/Resolved]
  - Cleft palate [Recovered/Resolved with Sequelae]

NARRATIVE: CASE EVENT DATE: 2007
